FAERS Safety Report 8453749-8 (Version None)
Quarter: 2012Q2

REPORT INFORMATION
  Report Type: 
  Country: None (occurrence: None)
  Receive Date: 20120620
  Receipt Date: 20120510
  Transmission Date: 20120825
  Serious: No
  Sender: FDA-Public Use
  Company Number: US-ASTRAZENECA-2012SE30383

PATIENT
  Sex: Female

DRUGS (2)
  1. PRILOSEC [Suspect]
     Route: 048
  2. METOPROLOL TARTRATE [Suspect]
     Route: 048

REACTIONS (5)
  - HOT FLUSH [None]
  - BLOOD CHOLESTEROL INCREASED [None]
  - DIZZINESS [None]
  - MUSCLE SPASMS [None]
  - HYPERTENSION [None]
